FAERS Safety Report 12470055 (Version 1)
Quarter: 2016Q2

REPORT INFORMATION
  Report Type: Spontaneous
  Country: FR (occurrence: FR)
  Receive Date: 20160616
  Receipt Date: 20160616
  Transmission Date: 20160815
  Serious: Yes (Hospitalization)
  Sender: FDA-Public Use
  Company Number: PHHY2016FR081279

PATIENT
  Age: 18 Year
  Sex: Female

DRUGS (1)
  1. ACLASTA [Suspect]
     Active Substance: ZOLEDRONIC ACID
     Indication: COMPLEX REGIONAL PAIN SYNDROME
     Dosage: 5 MG,ONCE
     Route: 042
     Dates: start: 20160427, end: 20160427

REACTIONS (6)
  - Sinus tachycardia [Recovered/Resolved]
  - Hot flush [Not Recovered/Not Resolved]
  - Palpitations [Recovered/Resolved]
  - Chest pain [Recovered/Resolved]
  - Pyrexia [Recovered/Resolved]
  - Headache [Not Recovered/Not Resolved]

NARRATIVE: CASE EVENT DATE: 20160427
